FAERS Safety Report 12349906 (Version 1)
Quarter: 2016Q2

REPORT INFORMATION
  Report Type: Spontaneous
  Country: US (occurrence: None)
  Receive Date: 20160509
  Receipt Date: 20160509
  Transmission Date: 20160815
  Serious: Yes (Other)
  Sender: FDA-Public Use
  Company Number: None

PATIENT
  Age: 59 Year
  Sex: Male
  Weight: 79.38 kg

DRUGS (3)
  1. CEFDINIR, 300 MG LUPIN [Suspect]
     Active Substance: CEFDINIR
     Indication: FOLLICULITIS
     Dosage: 30 CAPSULE(S) ONCE A DAY TAKEN BY MOUTH
     Route: 048
     Dates: start: 20160503, end: 20160505
  2. CLONAZEPAM. [Concomitant]
     Active Substance: CLONAZEPAM
  3. OMEPRAZOLE. [Concomitant]
     Active Substance: OMEPRAZOLE

REACTIONS (4)
  - Prescribed underdose [None]
  - Gastrooesophageal reflux disease [None]
  - Gastrointestinal pain [None]
  - Therapy cessation [None]

NARRATIVE: CASE EVENT DATE: 20160505
